FAERS Safety Report 8333732-3 (Version None)
Quarter: 2012Q2

REPORT INFORMATION
  Report Type: 
  Country: None (occurrence: None)
  Receive Date: 20120503
  Receipt Date: 20120503
  Transmission Date: 20120825
  Serious: Yes (Hospitalization)
  Sender: FDA-Public Use
  Company Number: None

PATIENT
  Age: 86 Year
  Sex: Female

DRUGS (1)
  1. PRADAXA [Suspect]
     Dosage: |DOSAGETEXT: 74 MG||STRENGTH: 75 MG||FREQ: BID||ROUTE: ORAL|
     Route: 048

REACTIONS (1)
  - CEREBELLAR HAEMORRHAGE [None]
